FAERS Safety Report 9358739 (Version 2)
Quarter: 2013Q3

REPORT INFORMATION
  Report Type: Spontaneous
  Country: US (occurrence: US)
  Receive Date: 20130620
  Receipt Date: 20130716
  Transmission Date: 20140515
  Serious: Yes (Other)
  Sender: FDA-Public Use
  Company Number: US-ROXANE LABORATORIES, INC.-2013-RO-00992RO

PATIENT
  Sex: Female

DRUGS (1)
  1. AZATHIOPRINE [Suspect]
     Indication: SYSTEMIC LUPUS ERYTHEMATOSUS

REACTIONS (6)
  - Systemic lupus erythematosus [Unknown]
  - Drug ineffective [Unknown]
  - Pyrexia [Unknown]
  - Blood urine present [Unknown]
  - Laboratory test abnormal [Unknown]
  - Product quality issue [Unknown]
